FAERS Safety Report 6693849-6 (Version None)
Quarter: 2010Q2

REPORT INFORMATION
  Report Type: 
  Country: None (occurrence: None)
  Receive Date: 20100423
  Receipt Date: 20100412
  Transmission Date: 20101027
  Serious: Yes (Other)
  Sender: FDA-Public Use
  Company Number: PHHY2009IE53555

PATIENT
  Sex: Male

DRUGS (3)
  1. CLOZARIL [Suspect]
     Indication: SCHIZOPHRENIA
     Dosage: UNK
     Dates: start: 20091119
  2. CLOZARIL [Suspect]
     Dosage: 50 MG, BID
  3. SERDOLECT [Concomitant]

REACTIONS (2)
  - CARDIAC ENZYMES INCREASED [None]
  - GRAND MAL CONVULSION [None]
